FAERS Safety Report 15110412 (Version 1)
Quarter: 2018Q3

REPORT INFORMATION
  Report Type: Spontaneous
  Country: DE (occurrence: DE)
  Receive Date: 20180705
  Receipt Date: 20180705
  Transmission Date: 20181010
  Serious: Yes (Hospitalization, Other)
  Sender: FDA-Public Use
  Company Number: DE-SA-2018SA167059

PATIENT
  Age: 50 Year
  Sex: Male
  Weight: 73 kg

DRUGS (7)
  1. OMEGA?3 MARINE TRIGLYCERIDES [Suspect]
     Active Substance: FISH OIL
     Indication: PRODUCT USED FOR UNKNOWN INDICATION
     Dosage: 1 DF IN THE MORNING AND 1 DF IN THE EVENING
     Route: 048
  2. NEBIVOLOL. [Suspect]
     Active Substance: NEBIVOLOL
     Indication: PRODUCT USED FOR UNKNOWN INDICATION
     Dosage: 1 DF IN THE MORNING
     Route: 048
  3. CLOPIDOGREL BISULFATE. [Suspect]
     Active Substance: CLOPIDOGREL BISULFATE
     Indication: PRODUCT USED FOR UNKNOWN INDICATION
     Dosage: 1 DF IN THE MORNING
     Route: 048
     Dates: end: 20180604
  4. TIOBLIS [Suspect]
     Active Substance: ATORVASTATIN CALCIUM\EZETIMIBE
     Indication: TYPE IIA HYPERLIPIDAEMIA
     Dosage: 1 TABLET DAILY IN THE EVENING
     Route: 048
     Dates: start: 20170520
  5. ACETYLSALICYLIC ACID [Concomitant]
     Active Substance: ASPIRIN
     Dosage: 1 DF IN THE MORNING
     Route: 048
  6. EXFORGE [Suspect]
     Active Substance: AMLODIPINE BESYLATE\VALSARTAN
     Indication: PRODUCT USED FOR UNKNOWN INDICATION
     Dosage: 1 DF IN THE MORNING
     Route: 048
  7. TIOBLIS [Suspect]
     Active Substance: ATORVASTATIN CALCIUM\EZETIMIBE
     Dosage: 1 D, 1 TABLET DAILY IN THE EVENING
     Dates: start: 201801

REACTIONS (8)
  - Acute myocardial infarction [Unknown]
  - Pancreatitis acute [Not Recovered/Not Resolved]
  - Product intolerance [Unknown]
  - Pleural effusion [Unknown]
  - Pancreatitis haemorrhagic [Not Recovered/Not Resolved]
  - Coronary artery disease [Unknown]
  - Ascites [Unknown]
  - Coronary revascularisation [Unknown]

NARRATIVE: CASE EVENT DATE: 201705
